FAERS Safety Report 8536123-5 (Version None)
Quarter: 2012Q3

REPORT INFORMATION
  Report Type: 
  Country: None (occurrence: None)
  Receive Date: 20120725
  Receipt Date: 20120717
  Transmission Date: 20120928
  Serious: Yes (Other)
  Sender: FDA-Public Use
  Company Number: JP-ASTELLAS-2012JP006722

PATIENT
  Age: 11 Year
  Sex: Male

DRUGS (5)
  1. PREDNISOLONE [Concomitant]
     Indication: HYPER IGD SYNDROME
     Route: 048
  2. CELLCEPT [Concomitant]
     Indication: HYPER IGD SYNDROME
     Route: 065
  3. PROGRAF [Suspect]
     Indication: HYPER IGD SYNDROME
     Route: 065
  4. CYCLOSPORINE [Concomitant]
     Indication: HYPER IGD SYNDROME
     Route: 065
  5. METHOTREXATE [Concomitant]
     Indication: HYPER IGD SYNDROME
     Dosage: UNK
     Route: 065

REACTIONS (2)
  - ARTHRITIS [None]
  - DRUG INEFFECTIVE FOR UNAPPROVED INDICATION [None]
